FAERS Safety Report 9851222 (Version 3)
Quarter: 2014Q1

REPORT INFORMATION
  Report Type: Report from Study
  Country: AU (occurrence: AU)
  Receive Date: 20140128
  Receipt Date: 20140312
  Transmission Date: 20141002
  Serious: Yes (Other)
  Sender: FDA-Public Use
  Company Number: AU-CELGENEUS-008-21660-14012727

PATIENT
  Age: 48 Year
  Sex: Female

DRUGS (2)
  1. ABRAXANE [Suspect]
     Indication: BREAST CANCER
     Route: 065
     Dates: start: 201308
  2. ELOCON [Concomitant]
     Indication: PSORIASIS
     Route: 061

REACTIONS (10)
  - Amenorrhoea [Not Recovered/Not Resolved]
  - Alopecia [Not Recovered/Not Resolved]
  - Toothache [Not Recovered/Not Resolved]
  - Flushing [Recovered/Resolved]
  - Hot flush [Not Recovered/Not Resolved]
  - Insomnia [Recovered/Resolved]
  - Myalgia [Recovered/Resolved]
  - Onychalgia [Not Recovered/Not Resolved]
  - Rash [Not Recovered/Not Resolved]
  - Peripheral sensory neuropathy [Not Recovered/Not Resolved]
